FAERS Safety Report 12602539 (Version 1)
Quarter: 2016Q3

REPORT INFORMATION
  Report Type: Spontaneous
  Country: US (occurrence: US)
  Receive Date: 20160728
  Receipt Date: 20160728
  Transmission Date: 20161109
  Serious: No
  Sender: FDA-Public Use
  Company Number: US-BAUSCH-BL-2015-016305

PATIENT
  Age: 83 Year
  Sex: Female
  Weight: 122.58 kg

DRUGS (2)
  1. EQUATE ARTIFICIAL TEARS [Suspect]
     Active Substance: GLYCERIN\HYPROMELLOSES\POLYETHYLENE GLYCOL 400
     Indication: PRODUCT USED FOR UNKNOWN INDICATION
     Route: 065
     Dates: start: 20150614, end: 20150624
  2. OPCON-A [Suspect]
     Active Substance: NAPHAZOLINE HYDROCHLORIDE\PHENIRAMINE MALEATE
     Indication: PRODUCT USED FOR UNKNOWN INDICATION
     Route: 065
     Dates: start: 20150614, end: 20150624

REACTIONS (2)
  - Eyelid oedema [Unknown]
  - Erythema of eyelid [Unknown]

NARRATIVE: CASE EVENT DATE: 20150615
